FAERS Safety Report 7374739-2 (Version None)
Quarter: 2011Q1

REPORT INFORMATION
  Report Type: 
  Country: None (occurrence: None)
  Receive Date: 20110325
  Receipt Date: 20101112
  Transmission Date: 20110831
  Serious: No
  Sender: FDA-Public Use
  Company Number: US-MYLANLABS-2010S1017533

PATIENT
  Age: 71 Year
  Sex: Male

DRUGS (16)
  1. HUMALOG [Concomitant]
  2. ASPIRIN [Concomitant]
  3. GLUCOSAMINE W/CHONDROITIN [Concomitant]
  4. ELAVIL [Concomitant]
     Indication: INSOMNIA
  5. MORPHINE [Concomitant]
  6. FENTANYL-100 [Suspect]
     Indication: PAIN
     Dosage: Q48H
     Route: 062
     Dates: start: 20100921
  7. CARVEDILOL [Concomitant]
  8. PLAVIX [Concomitant]
  9. MULTI-VITAMINS [Concomitant]
  10. ENALAPRIL MALEATE [Concomitant]
  11. NEXIUM [Concomitant]
  12. FLOMAX [Concomitant]
  13. FUROSEMIDE [Concomitant]
  14. LANTUS /01696801/ [Concomitant]
  15. TRICOR [Concomitant]
  16. AFRIN /00070001/ [Concomitant]

REACTIONS (2)
  - OROPHARYNGEAL BLISTERING [None]
  - ORAL PAIN [None]
